FAERS Safety Report 4337425-9 (Version None)
Quarter: 2004Q2

REPORT INFORMATION
  Report Type: 
  Country: None (occurrence: None)
  Receive Date: 20040408
  Receipt Date: 20040330
  Transmission Date: 20050107
  Serious: Yes (Hospitalization)
  Sender: FDA-Public Use
  Company Number: US070951

PATIENT
  Age: 53 Year
  Sex: Female
  Weight: 61 kg

DRUGS (2)
  1. STEMGEN [Suspect]
     Indication: PERIPHERAL BLOOD STEM CELL APHERESIS
     Dosage: 20 MG/KG, 1 IN 1 DAYS, SC
     Route: 058
     Dates: start: 20040325, end: 20040326
  2. NEUPOGEN [Suspect]
     Indication: PERIPHERAL BLOOD STEM CELL APHERESIS
     Dosage: 600 MCG, 1 IN 1 DAYS, SC
     Route: 058
     Dates: start: 20040325, end: 20040326

REACTIONS (1)
  - HEPATITIS ACUTE [None]
